FAERS Safety Report 8119262-2 (Version None)
Quarter: 2011Q4

REPORT INFORMATION
  Report Type: 
  Country: None (occurrence: None)
  Receive Date: 20111227
  Receipt Date: 20110929
  Transmission Date: 20120403
  Serious: No
  Sender: FDA-Public Use
  Company Number: PHEH2011US05697

PATIENT
  Age: 45 Year
  Sex: Female
  Weight: 72.6 kg

DRUGS (5)
  1. VITAMIN D (ERGOCALCIFEROL) CAPSULE [Concomitant]
  2. LANOXIN (DIGOXIN) TABLET [Concomitant]
  3. ATENOLOL [Concomitant]
  4. OMEPRAZOLE (OMEPRAZOLE) CAPSULE [Concomitant]
  5. GILENYA [Suspect]
     Dosage: 0.5 MG, QD, ORAL
     Route: 048

REACTIONS (4)
  - VISUAL IMPAIRMENT [None]
  - VISION BLURRED [None]
  - DIZZINESS [None]
  - HEPATIC ENZYME INCREASED [None]
